FAERS Safety Report 17402083 (Version 9)
Quarter: 2022Q1

REPORT INFORMATION
  Report Type: Spontaneous
  Country: GB (occurrence: GB)
  Receive Date: 20200211
  Receipt Date: 20220103
  Transmission Date: 20220423
  Serious: Yes (Hospitalization, Disabling, Other)
  Sender: FDA-Public Use
  Company Number: GB-SA-2019SA307128

PATIENT
  Age: 8 Year
  Sex: Female
  Weight: 23.35 kg

DRUGS (41)
  1. AFINITOR [Suspect]
     Active Substance: EVEROLIMUS
     Indication: Brain stem glioma
     Dosage: 5 MG (ON MONDAY, WEDNESDAY AND FRIDAY AND 2.5 MG ON TUESDAY, THURSDAY, SATURDAY AND SUNDAY)
     Route: 048
     Dates: start: 20190717, end: 20200207
  2. AFINITOR [Suspect]
     Active Substance: EVEROLIMUS
     Dosage: 25 MG, QW (5 MG ON MONDAY, WEDNESDAY AND FRIDAY AND 2.5 MG)
     Route: 048
     Dates: start: 20190717, end: 20191014
  3. AFINITOR [Suspect]
     Active Substance: EVEROLIMUS
     Dosage: 5 MG ON MONDAY, WEDNESDAY AND FRIDAY AND 2.5 MG ON TUESDAY, THURSDAY, SATURDAY AND SUNDAY
     Route: 048
     Dates: start: 20190717, end: 20191014
  4. AFINITOR [Suspect]
     Active Substance: EVEROLIMUS
     Dosage: 2.5 MG (2.5 MG, 5 MG MONDAY/WEDNESDAY/FRIDAY AND 2.5 MG)
     Route: 048
     Dates: start: 20190718, end: 20200207
  5. AFINITOR [Suspect]
     Active Substance: EVEROLIMUS
     Dosage: 5 MG (5 MG ON MONDAY, WEDNESDAY AND FRIDAY AND 2.5 MG ON TUESDAY, THURSDAY, SATURDAY AND SUNDAY)
     Route: 048
     Dates: start: 20191001
  6. AFINITOR [Suspect]
     Active Substance: EVEROLIMUS
     Dosage: 5 MG (ON MONDAY, WEDNESDAY AND FRIDAY AND 2.5 MG ON TUESDAY, THURSDAY, SATURDAY AND SUNDAY)
     Route: 048
     Dates: start: 20191018, end: 20200207
  7. AFINITOR [Suspect]
     Active Substance: EVEROLIMUS
     Dosage: 5MG MONDAY/WEDNESDAY/FRIDAY
     Route: 048
     Dates: start: 20200212
  8. AFINITOR [Suspect]
     Active Substance: EVEROLIMUS
     Dosage: 2.5 MG TUESDAY/THURSDAY/SATURDAY/SUNDAY
     Route: 048
     Dates: start: 20200212
  9. AFINITOR [Suspect]
     Active Substance: EVEROLIMUS
     Dosage: 2.5 MG, QD (2.5 MG, BID, 5 MG MONDAY/WEDNESDAY/FRIDAY AND 2.5)
     Route: 048
     Dates: start: 20200213
  10. AFINITOR [Suspect]
     Active Substance: EVEROLIMUS
     Dosage: 2.5 MG TUESDAY/THURSDAY/SATURDAY/SUNDAY
     Route: 048
     Dates: start: 20210207
  11. AFINITOR [Suspect]
     Active Substance: EVEROLIMUS
     Dosage: 5 MG, QD (MONDAY/WEDNESDAY/FRIDAY)
     Route: 048
     Dates: start: 20210207
  12. AFINITOR [Suspect]
     Active Substance: EVEROLIMUS
     Dosage: 5 MG MONDAY/WEDNESDAY/FRIDAY
     Route: 048
     Dates: start: 20210207
  13. AFINITOR [Suspect]
     Active Substance: EVEROLIMUS
     Dosage: UNK
     Route: 065
  14. ACETAMINOPHEN [Suspect]
     Active Substance: ACETAMINOPHEN
     Indication: Product used for unknown indication
     Dosage: UNK UNK, QD PM
     Route: 048
  15. ACETAMINOPHEN [Suspect]
     Active Substance: ACETAMINOPHEN
     Dosage: 1 DF, QD (ORAL SOLUTION)
     Route: 048
  16. LOPERAMIDE [Suspect]
     Active Substance: LOPERAMIDE
     Indication: Diarrhoea
     Dosage: 2 MG, QID (ONE CAPSULE UP TO FOUR TIMES A DAY)
     Route: 065
  17. LOPERAMIDE [Suspect]
     Active Substance: LOPERAMIDE
     Dosage: 8 MG, QD (2 MG ONE CAPSULE UP TO FOUR TIMES A DAY)
     Route: 065
  18. LOPERAMIDE [Suspect]
     Active Substance: LOPERAMIDE
     Dosage: 2 MG ONE CAPSULE UP TO FOUR TIMES A DAY
     Route: 065
  19. LANSOPRAZOLE [Suspect]
     Active Substance: LANSOPRAZOLE
     Indication: Product used for unknown indication
     Dosage: UNK
     Route: 065
  20. DEXAMETHASONE [Suspect]
     Active Substance: DEXAMETHASONE
     Indication: Product used for unknown indication
     Dosage: VARIABLE; 4MG BD WEANED TO 0.5MG SECOND DAILY
     Route: 065
     Dates: start: 20191101, end: 20200221
  21. DEXAMETHASONE [Suspect]
     Active Substance: DEXAMETHASONE
     Dosage: 8 MG, QD (4 MG, 2X/DAY WEANED TO 0.5MG SECOND DAILY)
     Route: 048
     Dates: start: 20191101, end: 20200221
  22. DEXAMETHASONE [Suspect]
     Active Substance: DEXAMETHASONE
     Dosage: 9.2 MG, QD
     Route: 048
     Dates: start: 20200207, end: 20200221
  23. DEXAMETHASONE [Suspect]
     Active Substance: DEXAMETHASONE
     Dosage: 4.6 MG, BID (4.6 MG, BID, 9.2 MILLIGRAM, QD)
     Route: 048
     Dates: start: 20200207, end: 20200221
  24. DEXAMETHASONE [Suspect]
     Active Substance: DEXAMETHASONE
     Dosage: 7 MG, QD (3.5 MG, BID, 7 MG, 1X/DAY ORAL SOLUTION)
     Route: 048
     Dates: start: 20200210
  25. DEXAMETHASONE [Suspect]
     Active Substance: DEXAMETHASONE
     Dosage: 3.5 MG, QD
     Route: 048
     Dates: start: 20200212
  26. DEXAMETHASONE [Suspect]
     Active Substance: DEXAMETHASONE
     Dosage: 1.6 MG, QD
     Route: 048
     Dates: start: 20200215, end: 20200221
  27. DEXAMETHASONE [Suspect]
     Active Substance: DEXAMETHASONE
     Dosage: 0.5 MG(WEANED TO 0.5MG SECOND DAILY)
     Route: 065
     Dates: start: 20210221
  28. DEXAMETHASONE [Suspect]
     Active Substance: DEXAMETHASONE
     Dosage: UNK
     Route: 065
  29. DEXAMETHASONE [Suspect]
     Active Substance: DEXAMETHASONE
     Dosage: 3.5 MG, Q12H
     Route: 048
     Dates: start: 20210210
  30. RANITIDINE HYDROCHLORIDE [Suspect]
     Active Substance: RANITIDINE HYDROCHLORIDE
     Indication: Gastrooesophageal reflux disease
     Dosage: 50 MG, BID
     Route: 065
     Dates: start: 20191018
  31. RANITIDINE HYDROCHLORIDE [Suspect]
     Active Substance: RANITIDINE HYDROCHLORIDE
     Dosage: UNK UNK, QD
     Route: 065
  32. VANDETANIB [Suspect]
     Active Substance: VANDETANIB
     Indication: Brain stem glioma
     Dosage: 100 MG, QOD (65 MG/M2)
     Route: 048
     Dates: start: 20191009, end: 20191014
  33. VANDETANIB [Suspect]
     Active Substance: VANDETANIB
     Dosage: 100 MG, QOD (65 MG/M2)
     Route: 048
     Dates: start: 20191018, end: 20200207
  34. VANDETANIB [Suspect]
     Active Substance: VANDETANIB
     Dosage: 54 MG, QD (54 MILLIGRAM/SQ. METER, QD, 54 MG/M2, QD)
     Route: 048
     Dates: start: 20200212, end: 20200302
  35. VANDETANIB [Suspect]
     Active Substance: VANDETANIB
     Dosage: 65 MG/M2, QD
     Route: 048
     Dates: start: 20200316, end: 20200420
  36. VANDETANIB [Suspect]
     Active Substance: VANDETANIB
     Dosage: 65 MG, QD (65MG 65 MILLIGRAM/SQ. METER, QD)
     Route: 048
     Dates: start: 20191009, end: 20191014
  37. VANDETANIB [Suspect]
     Active Substance: VANDETANIB
     Dosage: 100 MG, QOD
     Route: 065
     Dates: start: 20200316, end: 20200420
  38. VANDETANIB [Suspect]
     Active Substance: VANDETANIB
     Dosage: 100 MG, QOD
     Route: 048
     Dates: start: 20200212, end: 20200302
  39. VANDETANIB [Suspect]
     Active Substance: VANDETANIB
     Dosage: 200 MG, QD (100 MG QOD (65 MG/M2))
     Route: 065
     Dates: start: 20191018, end: 20200207
  40. COTRIMSTADA [Concomitant]
     Indication: Product used for unknown indication
     Dosage: 360 MG, BID ON SAT/SUN ONLY
     Route: 065
  41. COTRIMSTADA [Concomitant]
     Dosage: 720 MG, QD (720 MILLIGRAM, QD (360 MG, BID (7.5 ML) ON SATURDAYS AND SUNDAYS)
     Route: 065

REACTIONS (38)
  - Facial paralysis [Recovered/Resolved]
  - Facial paralysis [Recovered/Resolved]
  - Abdominal distension [Recovered/Resolved]
  - Hemiparesis [Recovered/Resolved]
  - Lymphocyte count decreased [Not Recovered/Not Resolved]
  - Flatulence [Recovered/Resolved]
  - Ataxia [Recovered/Resolved]
  - Blood triglycerides increased [Unknown]
  - White blood cell count decreased [Not Recovered/Not Resolved]
  - Blood cholesterol increased [Not Recovered/Not Resolved]
  - Neutrophil count decreased [Recovered/Resolved]
  - Alanine aminotransferase increased [Recovered/Resolved]
  - Blood creatinine increased [Recovered/Resolved]
  - Medication error [Unknown]
  - Neutrophil count decreased [Recovered/Resolved]
  - Electrocardiogram QT prolonged [Recovered/Resolved]
  - Facial paralysis [Recovered/Resolved]
  - Brain stem glioma [Unknown]
  - Disease progression [Unknown]
  - Hypertension [Recovered/Resolved]
  - Malignant neoplasm progression [Unknown]
  - Blood cholesterol increased [Unknown]
  - Reflux gastritis [Recovered/Resolved]
  - Blood creatinine increased [Unknown]
  - Myoclonus [Recovered/Resolved]
  - Ocular hyperaemia [Recovered/Resolved]
  - Hypophagia [Not Recovered/Not Resolved]
  - Stomatitis [Recovered/Resolved]
  - Blood cholesterol increased [Recovered/Resolved]
  - Ataxia [Unknown]
  - Hypophosphataemia [Recovered/Resolved]
  - Neutrophil count decreased [Recovered/Resolved]
  - Blood creatinine increased [Recovered/Resolved]
  - Abdominal distension [Recovered/Resolved]
  - Gastrooesophageal reflux disease [Recovered/Resolved]
  - Brain stem glioma [Unknown]
  - Off label use [Unknown]
  - Product use in unapproved indication [Unknown]

NARRATIVE: CASE EVENT DATE: 20191111
